FAERS Safety Report 6768744-4 (Version None)
Quarter: 2010Q2

REPORT INFORMATION
  Report Type: 
  Country: None (occurrence: None)
  Receive Date: 20100614
  Receipt Date: 20100601
  Transmission Date: 20101027
  Serious: Yes (Hospitalization)
  Sender: FDA-Public Use
  Company Number: US-ABBOTT-10P-163-0639768-00

PATIENT
  Sex: Female
  Weight: 59.02 kg

DRUGS (11)
  1. HUMIRA [Suspect]
     Indication: CROHN'S DISEASE
     Route: 058
     Dates: start: 20080301, end: 20100101
  2. HUMIRA [Suspect]
     Dates: start: 20100401
  3. NASAL QUART AQ [Concomitant]
     Indication: SEASONAL ALLERGY
  4. PANTANSE [Concomitant]
     Indication: SEASONAL ALLERGY
     Dosage: 0.6%, 2 SPRAYS IN 1 DAY
     Route: 045
  5. SINGULAIR [Concomitant]
     Indication: SEASONAL ALLERGY
     Dosage: DAILY DOSE: 10MG IN A.M.
  6. CELEXA [Concomitant]
     Indication: DRUG USE FOR UNKNOWN INDICATION
     Dosage: 20MG, 2 IN 1 DAY
  7. ELMIRON [Concomitant]
     Indication: CYSTITIS INTERSTITIAL
  8. UTIRA C [Concomitant]
     Indication: CYSTITIS INTERSTITIAL
  9. KLONOPIN [Concomitant]
     Indication: DRUG USE FOR UNKNOWN INDICATION
     Dosage: AT BEDTIME
  10. PREMPRO [Concomitant]
     Indication: DRUG USE FOR UNKNOWN INDICATION
     Dosage: DAILY DOSE: 0.625MG AT BEDTIME
  11. PROTONIX [Concomitant]
     Indication: GASTROOESOPHAGEAL REFLUX DISEASE
     Dosage: DAILY DOSE: 40MG AT BEDTIME

REACTIONS (9)
  - ABDOMINAL PAIN [None]
  - ASTHENIA [None]
  - COLON NEOPLASM [None]
  - CORNEAL ABRASION [None]
  - DECREASED APPETITE [None]
  - DIARRHOEA [None]
  - EYE PAIN [None]
  - FIBROMYALGIA [None]
  - WEIGHT DECREASED [None]
